FAERS Safety Report 11823797 (Version 1)
Quarter: 2015Q4

REPORT INFORMATION
  Report Type: Spontaneous
  Country: US (occurrence: US)
  Receive Date: 20151210
  Receipt Date: 20151210
  Transmission Date: 20160305
  Serious: No
  Sender: FDA-Public Use
  Company Number: US-MYLANLABS-2015M1031177

PATIENT
  Sex: Male

DRUGS (5)
  1. PERPHENAZINE AND AMITRIPTYLINE HYDROCHLORIDE TABLETS, USP [Suspect]
     Active Substance: PERPHENAZINE
     Indication: ANXIETY
     Dosage: 12MG/75MG, AM
     Route: 048
     Dates: start: 1991
  2. SERTRALINE HYDROCHLORIDE. [Suspect]
     Active Substance: SERTRALINE HYDROCHLORIDE
     Indication: DEPRESSION
  3. SERTRALINE HYDROCHLORIDE. [Suspect]
     Active Substance: SERTRALINE HYDROCHLORIDE
     Indication: ANXIETY
     Dosage: 100 MG, TID
     Route: 048
     Dates: start: 2010
  4. PERPHENAZINE AND AMITRIPTYLINE HYDROCHLORIDE TABLETS, USP [Suspect]
     Active Substance: PERPHENAZINE
     Indication: DEPRESSION
     Dosage: 8 MG/ 50 MG, HS
     Route: 048
     Dates: start: 1991
  5. PERPHENAZINE AND AMITRIPTYLINE HYDROCHLORIDE TABLETS, USP [Suspect]
     Active Substance: PERPHENAZINE
     Dosage: 4 MG/25 MG, TID ( ONE TABLET EVERY AM, ONE TABLET AT LUNCH AND TWO TABLETS AT BEDTIME)
     Route: 048
     Dates: start: 1987, end: 1991

REACTIONS (2)
  - Agitation [Not Recovered/Not Resolved]
  - Drug ineffective [Not Recovered/Not Resolved]

NARRATIVE: CASE EVENT DATE: 1987
